FAERS Safety Report 5336320-6 (Version None)
Quarter: 2007Q2

REPORT INFORMATION
  Report Type: 
  Country: None (occurrence: None)
  Receive Date: 20070523
  Receipt Date: 20070510
  Transmission Date: 20071010
  Serious: Yes (Hospitalization)
  Sender: FDA-Public Use
  Company Number: TRP_00945_2007

PATIENT
  Sex: Female

DRUGS (2)
  1. RIBAPAK/RIBAVIRIN/THREE RIVERS PHARMA (TRP) [Suspect]
     Indication: HEPATITIS C
     Dosage: (ORAL)
     Route: 048
     Dates: start: 20061014
  2. PEG-INTRON [Suspect]
     Indication: HEPATITIS C
     Dosage: (SUBCUTANEOUS)
     Route: 058
     Dates: start: 20061014

REACTIONS (5)
  - CEREBROVASCULAR ACCIDENT [None]
  - HEADACHE [None]
  - HYPOAESTHESIA [None]
  - INFLUENZA LIKE ILLNESS [None]
  - MYALGIA [None]
